FAERS Safety Report 10640971 (Version 2)
Quarter: 2015Q1

REPORT INFORMATION
  Report Type: Spontaneous
  Country: CA (occurrence: CA)
  Receive Date: 20141209
  Receipt Date: 20150318
  Transmission Date: 20150720
  Serious: Yes (Life-Threatening, Hospitalization, Other)
  Sender: FDA-Public Use
  Company Number: CA-SA-2014SA165261

PATIENT
  Age: 42 Year
  Sex: Male
  Weight: 75 kg

DRUGS (11)
  1. CLOPIDOGREL BISULFATE. [Interacting]
     Active Substance: CLOPIDOGREL BISULFATE
     Route: 048
  2. ASPIRIN. [Interacting]
     Active Substance: ASPIRIN
     Route: 048
  3. ASPIRIN. [Interacting]
     Active Substance: ASPIRIN
     Route: 048
  4. LOVENOX [Suspect]
     Active Substance: ENOXAPARIN SODIUM
     Route: 058
  5. TNKASE [Interacting]
     Active Substance: ISOPROPYL ALCOHOL\TENECTEPLASE
     Route: 042
  6. CARBAMAZEPINE. [Concomitant]
     Active Substance: CARBAMAZEPINE
  7. LOVENOX [Interacting]
     Active Substance: ENOXAPARIN SODIUM
     Route: 042
  8. LOVENOX [Interacting]
     Active Substance: ENOXAPARIN SODIUM
     Dosage: SOLUTION?SUBCUTANEOUS
     Route: 042
  9. CLOPIDOGREL BISULFATE. [Interacting]
     Active Substance: CLOPIDOGREL BISULFATE
     Route: 048
  10. CEFTRIAXONE. [Concomitant]
     Active Substance: CEFTRIAXONE
  11. LOVENOX [Interacting]
     Active Substance: ENOXAPARIN SODIUM
     Dosage: SOLUTION?SUBCUTANEOUS
     Route: 042

REACTIONS (10)
  - Asthenia [Not Recovered/Not Resolved]
  - Cerebral haemorrhage [Not Recovered/Not Resolved]
  - Hemiparesis [Not Recovered/Not Resolved]
  - Drug interaction [Unknown]
  - Cerebrovascular accident [Not Recovered/Not Resolved]
  - Dysarthria [Not Recovered/Not Resolved]
  - Hypoaesthesia [Not Recovered/Not Resolved]
  - Aphasia [Not Recovered/Not Resolved]
  - Haemorrhagic stroke [Not Recovered/Not Resolved]
  - Agnosia [Not Recovered/Not Resolved]
